FAERS Safety Report 6552918-1 (Version None)
Quarter: 2010Q1

REPORT INFORMATION
  Report Type: 
  Country: None (occurrence: None)
  Receive Date: 20100122
  Receipt Date: 20100118
  Transmission Date: 20100710
  Serious: Yes (Death, Hospitalization)
  Sender: FDA-Public Use
  Company Number: LTI2010A00010

PATIENT
  Sex: Female

DRUGS (10)
  1. LANSOPRAZOLE [Suspect]
     Dosage: ORAL
     Route: 048
     Dates: start: 20091101, end: 20091206
  2. HUMIRA [Suspect]
     Dosage: 5.7143 MG (40 MG, 1 IN 1 WK) SUBCUTANEOUS
     Route: 058
     Dates: start: 20081001, end: 20091101
  3. METOJECT (METHOTREXATE) [Suspect]
     Dosage: 20 MG (20 MG, 1 IN 1 D) SUBCUTANEOUS
     Route: 058
     Dates: start: 20061001, end: 20091101
  4. PREDNISONE [Suspect]
     Dosage: 5 MG (5 MG, 1 IN 1 D)
     Route: 048
     Dates: start: 20061001, end: 20091206
  5. PROTELOS (STRONTIUM RANELATE) [Suspect]
     Dosage: 2 GM (2 GM, 1 IN 1 D) ORAL
     Route: 048
     Dates: end: 20091115
  6. CALCIUM ACETATE (CALCIUM ACETATE) [Suspect]
     Dosage: ORAL
     Route: 048
     Dates: end: 20091206
  7. VITAMIN D [Suspect]
     Dosage: ORAL
     Route: 048
     Dates: end: 20091206
  8. ATENOLOL [Suspect]
     Dosage: 50 MG (50 MG, 1 IN 1 D) ORAL
     Route: 048
     Dates: end: 20091206
  9. ASPIRIN [Suspect]
     Dosage: (160 MG) ORAL
     Route: 048
     Dates: end: 20091206
  10. INNOHEP [Suspect]
     Dosage: SUBCUTANEOUS
     Route: 058
     Dates: start: 20091101, end: 20091206

REACTIONS (3)
  - DEEP VEIN THROMBOSIS [None]
  - PULMONARY EMBOLISM [None]
  - TUBERCULOSIS [None]
